FAERS Safety Report 6067843-2 (Version None)
Quarter: 2009Q1

REPORT INFORMATION
  Report Type: 
  Country: None (occurrence: None)
  Receive Date: 20090205
  Receipt Date: 20090123
  Transmission Date: 20090719
  Serious: Yes (Death, Hospitalization)
  Sender: FDA-Public Use
  Company Number: AT-ABBOTT-09P-009-0501595-00

PATIENT
  Sex: Male

DRUGS (2)
  1. TRENANTONE [Suspect]
     Indication: PROSTATE CANCER
     Route: 058
     Dates: start: 19990701, end: 20000308
  2. ANDROCUR [Concomitant]
     Indication: DRUG USE FOR UNKNOWN INDICATION
     Route: 048
     Dates: start: 19990701, end: 20000315

REACTIONS (2)
  - PELVIC VENOUS THROMBOSIS [None]
  - PROSTATE CANCER METASTATIC [None]
